FAERS Safety Report 12840688 (Version 4)
Quarter: 2016Q4

REPORT INFORMATION
  Report Type: Report from Study
  Country: None (occurrence: BE)
  Receive Date: 20161012
  Receipt Date: 20161107
  Transmission Date: 20170207
  Serious: Yes (Death, Other)
  Sender: FDA-Public Use
  Company Number: BE-ABBVIE-16K-013-1665579-00

PATIENT
  Age: 71 Year
  Sex: Male

DRUGS (9)
  1. DUODOPA [Suspect]
     Active Substance: CARBIDOPA\LEVODOPA
     Dosage: AM= 9 ML; CD= 2.5 ML/H DURING 16 HRS; ED= 2.5 ML
     Route: 050
     Dates: start: 20160825, end: 20161005
  2. DUODOPA [Suspect]
     Active Substance: CARBIDOPA\LEVODOPA
     Route: 050
     Dates: start: 20100407, end: 20160612
  3. DUODOPA [Suspect]
     Active Substance: CARBIDOPA\LEVODOPA
     Dosage: AM= 9 ML; CD= 2.5 ML/H DURING 16 HRS; ED= 2.5 ML
     Route: 050
     Dates: start: 20160622, end: 20160823
  4. DUODOPA [Suspect]
     Active Substance: CARBIDOPA\LEVODOPA
     Dosage: AM= 9 ML; CD= 2.5 ML/H DURING 16 HRS; ED= 2.5 ML
     Route: 050
     Dates: start: 20160823, end: 20160825
  5. TEMESTA [Concomitant]
     Active Substance: LORAZEPAM
     Indication: PRODUCT USED FOR UNKNOWN INDICATION
  6. DUODOPA [Suspect]
     Active Substance: CARBIDOPA\LEVODOPA
     Indication: PARKINSON^S DISEASE
     Dosage: AM= 8 ML; CD= 4.6 ML/H DURING 16 HRS; ED= 3 ML
     Route: 050
     Dates: start: 20100329, end: 20100407
  7. DUODOPA [Suspect]
     Active Substance: CARBIDOPA\LEVODOPA
     Dosage: AM= 9 ML; CD= 3 ML/H DURING 16 HRS; ED= 2.5 ML
     Route: 050
     Dates: start: 20160612, end: 20160622
  8. DUODOPA [Suspect]
     Active Substance: CARBIDOPA\LEVODOPA
     Dosage: AM= 2 ML; CD= 1 ML/H DURING 16 HRS; ED= 1 ML
     Route: 050
     Dates: start: 20161021
  9. RISPERDAL [Concomitant]
     Active Substance: RISPERIDONE
     Indication: PRODUCT USED FOR UNKNOWN INDICATION

REACTIONS (24)
  - Post-traumatic pain [Unknown]
  - Fluid intake restriction [Unknown]
  - Metastatic neoplasm [Fatal]
  - Choking [Unknown]
  - Hypophagia [Unknown]
  - Pyrexia [Recovered/Resolved]
  - Agitation [Unknown]
  - On and off phenomenon [Not Recovered/Not Resolved]
  - General physical health deterioration [Unknown]
  - Device deployment issue [Unknown]
  - Dysphonia [Unknown]
  - Device dislocation [Recovered/Resolved]
  - Mobility decreased [Not Recovered/Not Resolved]
  - Secretion discharge [Unknown]
  - Gait disturbance [Unknown]
  - Dyskinesia [Unknown]
  - Hypersexuality [Recovering/Resolving]
  - Mobility decreased [Unknown]
  - Fall [Recovered/Resolved]
  - Pyrexia [Unknown]
  - Incorrect route of drug administration [Recovered/Resolved]
  - Confusional state [Unknown]
  - Muscle rigidity [Not Recovered/Not Resolved]
  - Unintentional medical device removal [Recovered/Resolved]

NARRATIVE: CASE EVENT DATE: 201608
